FAERS Safety Report 19758905 (Version 2)
Quarter: 2021Q3

REPORT INFORMATION
  Report Type: Spontaneous
  Country: CA (occurrence: CA)
  Receive Date: 20210829
  Receipt Date: 20210911
  Transmission Date: 20211014
  Serious: Yes (Hospitalization)
  Sender: FDA-Public Use
  Company Number: CA-TEVA-2021-CA-1946413

PATIENT
  Age: 16 Year
  Sex: Male
  Weight: 64 kg

DRUGS (13)
  1. DOXORUBICIN HYDROCHLORIDE INJECTION [Suspect]
     Active Substance: DOXORUBICIN HYDROCHLORIDE
     Indication: LEUKAEMIA
     Route: 065
  2. MORPHINE [Suspect]
     Active Substance: MORPHINE
     Route: 065
  3. DIMENHYDRINATE. [Concomitant]
     Active Substance: DIMENHYDRINATE
  4. FLOVENT [Concomitant]
     Active Substance: FLUTICASONE PROPIONATE
  5. ONDANSETRON [Concomitant]
     Active Substance: ONDANSETRON
  6. ETOPOSIDE. [Suspect]
     Active Substance: ETOPOSIDE
     Indication: LEUKAEMIA
     Route: 065
  7. VINCRISTINE [Suspect]
     Active Substance: VINCRISTINE
     Indication: LEUKAEMIA
     Route: 065
  8. CYCLOPHOSPHAMIDE. [Suspect]
     Active Substance: CYCLOPHOSPHAMIDE
     Indication: LEUKAEMIA
     Route: 065
  9. FILGRASTIM [Concomitant]
     Active Substance: FILGRASTIM
  10. LORAZEPAM. [Concomitant]
     Active Substance: LORAZEPAM
  11. BLEOMYCIN SULPHATE FOR INJECTION USP [Suspect]
     Active Substance: BLEOMYCIN SULFATE
     Indication: LEUKAEMIA
     Route: 065
  12. PREDNISONE. [Suspect]
     Active Substance: PREDNISONE
     Indication: LEUKAEMIA
     Route: 065
  13. LAX?A?DAY [Suspect]
     Active Substance: POLYETHYLENE GLYCOL 3350
     Route: 065

REACTIONS (1)
  - Febrile neutropenia [Recovered/Resolved]
